FAERS Safety Report 4370751-6 (Version None)
Quarter: 2004Q2

REPORT INFORMATION
  Report Type: 
  Country: None (occurrence: None)
  Receive Date: 20040601
  Receipt Date: 20040520
  Transmission Date: 20050107
  Serious: Yes (Other)
  Sender: FDA-Public Use
  Company Number: STA-AE-04-MTX-108

PATIENT
  Age: 54 Year
  Sex: Female

DRUGS (3)
  1. METHOTREXATE [Suspect]
     Indication: MULTIPLE SCLEROSIS
     Dosage: 7.5 MG 1 X PER 1 WK,
     Dates: start: 20020101
  2. AZATHIOPRINE [Suspect]
     Indication: MULTIPLE SCLEROSIS
     Dosage: ORAL
     Route: 048
     Dates: end: 20020101
  3. FOLIC ACID [Concomitant]

REACTIONS (6)
  - ACTINIC KERATOSIS [None]
  - BASAL CELL CARCINOMA [None]
  - DISEASE PROGRESSION [None]
  - MULTIPLE SCLEROSIS [None]
  - SQUAMOUS CELL CARCINOMA [None]
  - SWEAT GLAND INFECTION [None]
